FAERS Safety Report 14669171 (Version 1)
Quarter: 2018Q1

REPORT INFORMATION
  Report Type: Spontaneous
  Country: US (occurrence: US)
  Receive Date: 20180322
  Receipt Date: 20180322
  Transmission Date: 20180509
  Serious: Yes (Other)
  Sender: FDA-Public Use
  Company Number: US-TEVA-2018-US-872992

PATIENT
  Age: 56 Year
  Sex: Female

DRUGS (2)
  1. DULAGLUTIDE. [Concomitant]
     Active Substance: DULAGLUTIDE
     Indication: TYPE 2 DIABETES MELLITUS
     Route: 065
  2. OMEPRAZOLE DELAYED RELEASE CAPSULES [Suspect]
     Active Substance: OMEPRAZOLE
     Dosage: 10 MG, 20 MG AND 30 MG
     Route: 065

REACTIONS (1)
  - Blood calcitonin increased [Recovering/Resolving]
